FAERS Safety Report 9442533 (Version 3)
Quarter: 2013Q3

REPORT INFORMATION
  Report Type: Spontaneous
  Country: JP (occurrence: JP)
  Receive Date: 20130806
  Receipt Date: 20130924
  Transmission Date: 20140515
  Serious: Yes (Hospitalization, Other)
  Sender: FDA-Public Use
  Company Number: JP-PFIZER INC-2013225487

PATIENT
  Age: 65 Year
  Sex: Male
  Weight: 95 kg

DRUGS (10)
  1. LYRICA [Suspect]
     Indication: HYPOAESTHESIA
     Dosage: 75 MG, 1X/DAY
     Route: 048
     Dates: start: 20130705, end: 20130708
  2. CELECOX [Concomitant]
     Indication: BACK PAIN
     Dosage: 100 MG, 2X/DAY
     Route: 048
     Dates: start: 20130705, end: 20130712
  3. CELECOX [Concomitant]
     Indication: MUSCULOSKELETAL PAIN
  4. MYONAL [Concomitant]
     Indication: BACK PAIN
     Dosage: 50 MG, 2X/DAY
     Route: 048
     Dates: start: 20130705, end: 20130712
  5. MYONAL [Concomitant]
     Indication: MUSCULOSKELETAL PAIN
  6. OPALMON [Concomitant]
     Indication: PAIN IN EXTREMITY
     Dosage: 5 UG, 3X/DAY
     Route: 048
     Dates: start: 20130705, end: 20130710
  7. MOHRUS [Concomitant]
     Indication: PAIN IN EXTREMITY
     Dosage: 20 MG, 1X/DAY
     Route: 062
     Dates: start: 20130705
  8. UNISIA HD [Concomitant]
     Dosage: 1 TABLET, DAILY
     Route: 048
     Dates: start: 20130517
  9. CARDENALIN [Concomitant]
     Dosage: 1 MG, 2X/DAY
     Route: 048
     Dates: start: 20130517
  10. TRYPTANOL [Concomitant]
     Dosage: 1 TABLET, DAILY
     Route: 048
     Dates: start: 20130517, end: 20130708

REACTIONS (8)
  - Off label use [Unknown]
  - Cerebral infarction [Unknown]
  - Dizziness [Not Recovered/Not Resolved]
  - Muscular weakness [Not Recovered/Not Resolved]
  - Fall [Not Recovered/Not Resolved]
  - Hypoaesthesia [Unknown]
  - Blood pressure increased [Unknown]
  - Dysarthria [Unknown]
